FAERS Safety Report 8018809-4 (Version None)
Quarter: 2012Q1

REPORT INFORMATION
  Report Type: 
  Country: None (occurrence: None)
  Receive Date: 20120103
  Receipt Date: 20111219
  Transmission Date: 20120608
  Serious: Yes (Other)
  Sender: FDA-Public Use
  Company Number: SK-UCBSA-046837

PATIENT
  Age: 30 Year
  Sex: Female
  Weight: 70 kg

DRUGS (2)
  1. KEPPRA [Suspect]
     Dosage: 1000-0-500 MG
     Route: 048
     Dates: start: 20091214
  2. ACIDUM FOLICUM [Concomitant]
     Indication: INFERTILITY
     Dosage: 10 MG EVERY SECOND DAY
     Route: 048
     Dates: start: 20111110

REACTIONS (2)
  - PREGNANCY [None]
  - HIGH RISK PREGNANCY [None]
